FAERS Safety Report 9905899 (Version 1)
Quarter: 2014Q1

REPORT INFORMATION
  Report Type: Spontaneous
  Country: DE (occurrence: DE)
  Receive Date: 20140218
  Receipt Date: 20140218
  Transmission Date: 20141002
  Serious: Yes (Disabling)
  Sender: FDA-Public Use
  Company Number: DE-TEVA-462407GER

PATIENT
  Age: 40 Year
  Sex: Male
  Weight: 100 kg

DRUGS (5)
  1. SIMVASTATIN-RATIOPHARM 20 MG TABLETTEN [Suspect]
     Indication: HYPERLIPIDAEMIA
     Dosage: 20 MILLIGRAM DAILY;
     Route: 048
     Dates: start: 201002
  2. DELIX PLUS [Concomitant]
     Indication: HYPERTENSION
     Dosage: 5 MILLIGRAM DAILY;
     Route: 048
     Dates: start: 2006
  3. DELIX [Concomitant]
     Indication: HYPERTENSION
     Dosage: 5 MILLIGRAM DAILY;
     Route: 048
     Dates: start: 2006
  4. AMLODIPIN [Concomitant]
     Indication: HYPERTENSION
     Dosage: 5 MILLIGRAM DAILY;
     Route: 048
     Dates: start: 2010
  5. SYMBICORT 160/4,5 [Concomitant]
     Indication: BRONCHIAL HYPERREACTIVITY
     Dosage: 160 MCG BUDESONIDE AND 4.5 MCG FORMOTEROL FUMARATE
     Route: 055
     Dates: start: 2010

REACTIONS (1)
  - Polyneuropathy [Not Recovered/Not Resolved]
